FAERS Safety Report 11062863 (Version 1)
Quarter: 2015Q2

REPORT INFORMATION
  Report Type: Spontaneous
  Country: IT (occurrence: None)
  Receive Date: 20150422
  Receipt Date: 20150422
  Transmission Date: 20150821
  Serious: Yes (Hospitalization)
  Sender: FDA-Public Use
  Company Number: IT-DRAXIINC-000281

PATIENT
  Age: 81 Year
  Sex: Female

DRUGS (2)
  1. IODINE 131 (INN: SODIUM IIDIDE (131 I)) [Suspect]
     Active Substance: IODINE I-131
     Indication: HYPERTHYROIDISM
     Dosage: 18 MCI
     Route: 030
  2. THYROTROPIN (INN: THYROTHROPHIN) [Suspect]
     Active Substance: THYROTROPIN
     Indication: PRODUCT USED FOR UNKNOWN INDICATION
     Route: 030

REACTIONS (2)
  - Atrial fibrillation [None]
  - Hyperthyroidism [None]

NARRATIVE: CASE EVENT DATE: 20100101
